FAERS Safety Report 6159984-6 (Version None)
Quarter: 2009Q2

REPORT INFORMATION
  Report Type: 
  Country: None (occurrence: None)
  Receive Date: 20090416
  Receipt Date: 20090319
  Transmission Date: 20091009
  Serious: Yes (Death)
  Sender: FDA-Public Use
  Company Number: URSO-2008-172 FUP#1

PATIENT
  Age: 54 Year
  Sex: Female

DRUGS (15)
  1. URSO 250 [Suspect]
     Indication: ASCITES
     Dosage: 600 MG/DAY ORAL
     Route: 048
     Dates: start: 20061228
  2. MEDWAY (HUMAN SERUM ALBUMIN-GENETICAL RECOMBINATION) [Suspect]
     Indication: HEPATIC CIRRHOSIS
     Dosage: 50 ML/DAY DR
     Dates: start: 20081210, end: 20081210
  3. RIZE (CLOTIAZEPAM) [Suspect]
     Indication: SLEEP DISORDER
     Dosage: 10 MG/DAY PO
     Route: 048
     Dates: start: 20070606
  4. DEPAS (ETIZOLAM) [Suspect]
     Indication: SLEEP DISORDER
     Dosage: 0.5 MG/DAY PO
     Route: 048
     Dates: start: 20081029
  5. LANSOPRAZOLE [Concomitant]
  6. PREDNISOLONE [Concomitant]
  7. BENET (SODIUM RISENDRONATE HYDRATE) [Concomitant]
  8. ALOSENN (SENNA LEAF-SENNA POD) [Concomitant]
  9. NELBON (NITRAZEPAM) [Concomitant]
  10. MAGNEZIUM OXIDE [Concomitant]
  11. PROMAC (POLAPREZINC) [Concomitant]
  12. LASIX [Concomitant]
  13. ALDACTONE [Concomitant]
  14. LIVACT (ISOLEUCINE-LEUCINE-VALINE) [Concomitant]
  15. SHAKUYAKU-KANZO-TO [Concomitant]

REACTIONS (1)
  - CEREBRAL INFARCTION [None]
